FAERS Safety Report 4773024-2 (Version None)
Quarter: 2005Q3

REPORT INFORMATION
  Report Type: 
  Country: None (occurrence: None)
  Receive Date: 20050916
  Receipt Date: 20050909
  Transmission Date: 20060218
  Serious: Yes (Death)
  Sender: FDA-Public Use
  Company Number: KII-2005-0018590

PATIENT
  Age: 26 Year
  Sex: Female

DRUGS (2)
  1. HYDROMORPHONE HCL [Suspect]
     Dosage: SEE IMAGE
     Route: 048
  2. ETHANOL (ETHANOL) [Suspect]
     Dosage: SEE IMAGE
     Route: 048

REACTIONS (6)
  - CARDIO-RESPIRATORY ARREST [None]
  - EXCORIATION [None]
  - FACE INJURY [None]
  - HEART RATE INCREASED [None]
  - LOSS OF CONSCIOUSNESS [None]
  - PUPILS UNEQUAL [None]
